FAERS Safety Report 8553327-6 (Version None)
Quarter: 2012Q3

REPORT INFORMATION
  Report Type: 
  Country: None (occurrence: None)
  Receive Date: 20120731
  Receipt Date: 20120725
  Transmission Date: 20120928
  Serious: Yes (Hospitalization)
  Sender: FDA-Public Use
  Company Number: GB-ROCHE-1073281

PATIENT
  Age: 12 Year
  Sex: Male

DRUGS (10)
  1. ALBUTEROL SULATE [Concomitant]
  2. CETIRIZINE HCL [Concomitant]
  3. XOLAIR [Suspect]
     Dates: start: 20120705
  4. XOLAIR [Suspect]
     Indication: PRODUCT USED FOR UNKNOWN INDICATION
     Route: 058
     Dates: start: 20120508
  5. XOLAIR [Suspect]
     Route: 058
     Dates: start: 20120607
  6. ATROVENT [Concomitant]
  7. FLUTICASONE PROPIONATE/SALMETEROL [Concomitant]
  8. NASONEX [Concomitant]
  9. SLO-PHYLLIN [Concomitant]
  10. PREDNISOLONE [Concomitant]

REACTIONS (1)
  - ASTHMA [None]
